FAERS Safety Report 6589204-X (Version None)
Quarter: 2010Q1

REPORT INFORMATION
  Report Type: 
  Country: None (occurrence: None)
  Receive Date: 20100218
  Receipt Date: 20100208
  Transmission Date: 20100710
  Serious: Yes (Hospitalization)
  Sender: FDA-Public Use
  Company Number: IT-WYE-G05522410

PATIENT
  Sex: Female

DRUGS (10)
  1. RELISTOR [Suspect]
     Indication: CONSTIPATION
     Route: 058
  2. PANTOPRAZOLE [Concomitant]
     Dosage: 40MG
  3. DURAGESIC-100 [Concomitant]
  4. TAVOR [Concomitant]
     Dosage: 1MG
  5. ARANESP [Concomitant]
  6. KCL-RETARD [Concomitant]
  7. CALCIUM CARBONATE [Concomitant]
  8. FERRO-GRAD [Concomitant]
  9. SIMVASTATIN [Concomitant]
  10. CLEXANE [Concomitant]

REACTIONS (1)
  - PERITONITIS [None]
